FAERS Safety Report 7878435-4 (Version None)
Quarter: 2011Q4

REPORT INFORMATION
  Report Type: 
  Country: None (occurrence: None)
  Receive Date: 20111028
  Receipt Date: 20111024
  Transmission Date: 20120403
  Serious: Yes (Hospitalization)
  Sender: FDA-Public Use
  Company Number: GER/UKI/11/0021691

PATIENT
  Age: 23 Year
  Sex: Female

DRUGS (6)
  1. CAFFEINE (CAFFEINE) [Suspect]
     Indication: PRODUCT USED FOR UNKNOWN INDICATION
  2. LORAZEPAM [Suspect]
     Indication: PRODUCT USED FOR UNKNOWN INDICATION
  3. IBUPROFEN [Suspect]
     Indication: PRODUCT USED FOR UNKNOWN INDICATION
  4. ACETAMINOPHEN [Suspect]
     Indication: PRODUCT USED FOR UNKNOWN INDICATION
  5. ZOPICLONE (ZOPICLONE) [Suspect]
     Indication: PRODUCT USED FOR UNKNOWN INDICATION
  6. FLUOXETINE HYDROCHLORIDE [Suspect]
     Indication: PRODUCT USED FOR UNKNOWN INDICATION

REACTIONS (1)
  - MULTIPLE DRUG OVERDOSE [None]
